FAERS Safety Report 18638544 (Version 1)
Quarter: 2020Q4

REPORT INFORMATION
  Report Type: Spontaneous
  Country: ET (occurrence: ET)
  Receive Date: 20201218
  Receipt Date: 20201218
  Transmission Date: 20210114
  Serious: Yes (Death, Other)
  Sender: FDA-Public Use
  Company Number: ET-PURDUE-USA-2020-0189655

PATIENT
  Age: 35 Year
  Sex: Female

DRUGS (8)
  1. PARACETAMOL [Suspect]
     Active Substance: ACETAMINOPHEN
     Indication: PAROXYSMAL SYMPATHETIC HYPERACTIVITY
     Dosage: 1 G, PRN
     Route: 048
  2. VANCOMYCIN [Concomitant]
     Active Substance: VANCOMYCIN
     Dosage: 1 G, BID
     Route: 042
  3. CEFTRIAXONE. [Concomitant]
     Active Substance: CEFTRIAXONE
     Dosage: 2 G, BID
     Route: 042
  4. DIAZEPAM. [Suspect]
     Active Substance: DIAZEPAM
     Indication: PAROXYSMAL SYMPATHETIC HYPERACTIVITY
     Dosage: 5 MG, TID
     Route: 042
  5. DIAZEPAM. [Suspect]
     Active Substance: DIAZEPAM
     Dosage: 10 MG, UNK
     Route: 042
  6. PROPRANOLOL [Suspect]
     Active Substance: PROPRANOLOL HYDROCHLORIDE
     Indication: PAROXYSMAL SYMPATHETIC HYPERACTIVITY
     Dosage: 40 MG, TID
     Route: 048
  7. GABAPENTIN. [Suspect]
     Active Substance: GABAPENTIN
     Indication: PAROXYSMAL SYMPATHETIC HYPERACTIVITY
     Dosage: 150-300 MG, TID
     Route: 048
  8. NON-PMN MORPHINE SULFATE [Suspect]
     Active Substance: MORPHINE SULFATE
     Indication: PAROXYSMAL SYMPATHETIC HYPERACTIVITY
     Dosage: 2 MG, PRN
     Route: 042

REACTIONS (2)
  - Cardiac arrest [Fatal]
  - General physical health deterioration [Unknown]
